FAERS Safety Report 15430660 (Version 1)
Quarter: 2018Q3

REPORT INFORMATION
  Report Type: Spontaneous
  Country: US (occurrence: US)
  Receive Date: 20180921
  Receipt Date: 20180921
  Transmission Date: 20181010
  Serious: Yes (Hospitalization)
  Sender: FDA-Public Use
  Company Number: None

PATIENT
  Age: 60 Year
  Sex: Female
  Weight: 61.2 kg

DRUGS (10)
  1. NORCO [Concomitant]
     Active Substance: ACETAMINOPHEN\HYDROCODONE BITARTRATE
  2. COLACE [Concomitant]
     Active Substance: DOCUSATE SODIUM
  3. CIPRO [Concomitant]
     Active Substance: CIPROFLOXACIN HYDROCHLORIDE
  4. MOTRIN [Concomitant]
     Active Substance: IBUPROFEN
  5. DIAZEPAM. [Concomitant]
     Active Substance: DIAZEPAM
  6. MENTHOL PAIN PATCH [Concomitant]
  7. RISEDRONATE [Suspect]
     Active Substance: RISEDRONATE SODIUM
     Indication: OSTEOPENIA
     Dosage: ?          QUANTITY:1 TABLET(S);OTHER FREQUENCY:ONCE A MONTH;?
     Route: 048
  8. LIDOCAINE PATCH [Concomitant]
     Active Substance: LIDOCAINE
  9. MULTIVITAMIN [Concomitant]
     Active Substance: VITAMINS
  10. ASPIRIN LOW DOSE [Concomitant]
     Active Substance: ASPIRIN

REACTIONS (3)
  - Angioedema [None]
  - Dysarthria [None]
  - Tongue erythema [None]

NARRATIVE: CASE EVENT DATE: 20180703
